FAERS Safety Report 12999393 (Version 1)
Quarter: 2016Q4

REPORT INFORMATION
  Report Type: Spontaneous
  Country: IE (occurrence: IE)
  Receive Date: 20161205
  Receipt Date: 20161205
  Transmission Date: 20170207
  Serious: Yes (Death, Hospitalization, Other)
  Sender: FDA-Public Use
  Company Number: IE-JNJFOC-20161200675

PATIENT
  Age: 77 Year
  Sex: Male

DRUGS (9)
  1. XARELTO [Suspect]
     Active Substance: RIVAROXABAN
     Indication: PRODUCT USED FOR UNKNOWN INDICATION
     Route: 048
  2. SPIRONOLACTONE. [Concomitant]
     Active Substance: SPIRONOLACTONE
     Route: 048
  3. DIAMICRON [Concomitant]
     Active Substance: GLICLAZIDE
     Route: 048
  4. FUROSEMIDE. [Concomitant]
     Active Substance: FUROSEMIDE
     Route: 048
  5. NEXIUM [Concomitant]
     Active Substance: ESOMEPRAZOLE MAGNESIUM
     Route: 048
  6. BISOCOR [Concomitant]
     Active Substance: BISOPROLOL FUMARATE
     Route: 048
  7. NUPRIN [Concomitant]
     Active Substance: IBUPROFEN
     Route: 048
  8. TIOTROPIUM [Concomitant]
     Active Substance: TIOTROPIUM
     Route: 055
  9. ATORVASTATIN CALCIUM. [Concomitant]
     Active Substance: ATORVASTATIN CALCIUM
     Route: 048

REACTIONS (7)
  - Craniocerebral injury [Fatal]
  - Subarachnoid haemorrhage [Fatal]
  - Cerebral haemorrhage [Fatal]
  - Subdural haemorrhage [Fatal]
  - Fall [Fatal]
  - Skull fracture [Fatal]
  - Brain oedema [Fatal]

NARRATIVE: CASE EVENT DATE: 20160621
